FAERS Safety Report 8142911 (Version 5)
Quarter: 2014Q3

REPORT INFORMATION
  Report Type: Spontaneous
  Country: US (occurrence: US)
  Receive Date: 20110919
  Receipt Date: 20140912
  Transmission Date: 20150326
  Serious: Yes (Hospitalization, Other)
  Sender: FDA-Public Use
  Company Number: US-ACTELION-A-US2011-54094

PATIENT
  Age: 74 Year
  Sex: Female

DRUGS (15)
  1. ZYLOPRIM [Concomitant]
     Active Substance: ALLOPURINOL
  2. COREG [Concomitant]
     Active Substance: CARVEDILOL
  3. PACERONE [Concomitant]
     Active Substance: AMIODARONE HYDROCHLORIDE
  4. XELODA [Suspect]
     Active Substance: CAPECITABINE
     Indication: PRODUCT USED FOR UNKNOWN INDICATION
     Dosage: UNK
     Route: 065
  5. LIPITOR [Concomitant]
     Active Substance: ATORVASTATIN CALCIUM
  6. ALDACTONE [Concomitant]
     Active Substance: SPIRONOLACTONE
  7. INSULIN [Concomitant]
     Active Substance: INSULIN NOS
  8. SYNTHROID [Concomitant]
     Active Substance: LEVOTHYROXINE SODIUM
  9. LASIX [Concomitant]
     Active Substance: FUROSEMIDE
  10. POTASSIUM [Concomitant]
     Active Substance: POTASSIUM
  11. ASPIRIN. [Concomitant]
     Active Substance: ASPIRIN
  12. TRACLEER [Suspect]
     Active Substance: BOSENTAN\BOSENTAN MONOHYDRATE
     Indication: PULMONARY ARTERIAL HYPERTENSION
     Dosage: 125 MG, BID
     Route: 048
     Dates: start: 20031216
  13. XANAX [Concomitant]
     Active Substance: ALPRAZOLAM
  14. HUMALOG [Concomitant]
     Active Substance: INSULIN LISPRO
  15. ZAROXOLYN [Concomitant]
     Active Substance: METOLAZONE

REACTIONS (13)
  - Swelling [Recovering/Resolving]
  - Neoplasm malignant [Unknown]
  - Right ventricular failure [Recovering/Resolving]
  - Skin burning sensation [Recovering/Resolving]
  - Pulmonary arterial hypertension [Recovering/Resolving]
  - Cancer surgery [Recovering/Resolving]
  - Colorectal cancer [Recovering/Resolving]
  - Dyspnoea [Recovering/Resolving]
  - Drug hypersensitivity [Recovering/Resolving]
  - Rash [Recovering/Resolving]
  - Weight increased [Recovering/Resolving]
  - Oedema [Recovering/Resolving]
  - Hypoxia [Recovering/Resolving]

NARRATIVE: CASE EVENT DATE: 201109
